FAERS Safety Report 4672764-3 (Version None)
Quarter: 2005Q2

REPORT INFORMATION
  Report Type: 
  Country: None (occurrence: None)
  Receive Date: 20050523
  Receipt Date: 20050510
  Transmission Date: 20051028
  Serious: Yes (Hospitalization)
  Sender: FDA-Public Use
  Company Number: 2005073789

PATIENT
  Sex: Female
  Weight: 2.2 kg

DRUGS (1)
  1. SERTRALINE HCL [Suspect]
     Indication: ILL-DEFINED DISORDER
     Dosage: 100 MG (50 MG, 2 IN 1 D)

REACTIONS (13)
  - AGITATION NEONATAL [None]
  - BLOOD PRESSURE INCREASED [None]
  - DRUG EXPOSURE DURING PREGNANCY [None]
  - FEELING JITTERY [None]
  - HYPOGLYCAEMIA [None]
  - INAPPROPRIATE ANTIDIURETIC HORMONE SECRETION [None]
  - JAUNDICE NEONATAL [None]
  - LARGE FOR DATES BABY [None]
  - NEONATAL DISORDER [None]
  - NEONATAL RESPIRATORY DISTRESS SYNDROME [None]
  - OPISTHOTONUS [None]
  - PREMATURE BABY [None]
  - SEROTONIN SYNDROME [None]
